FAERS Safety Report 5169131-5 (Version None)
Quarter: 2006Q4

REPORT INFORMATION
  Report Type: 
  Country: None (occurrence: None)
  Receive Date: 20061211
  Receipt Date: 20060510
  Transmission Date: 20070319
  Serious: Yes (Hospitalization)
  Sender: FDA-Public Use
  Company Number: JP-MERCK-0605USA02578

PATIENT
  Age: 61 Year
  Sex: Male
  Weight: 63 kg

DRUGS (5)
  1. COZAAR [Suspect]
     Indication: HYPERTENSION
     Route: 048
     Dates: start: 20060411, end: 20060501
  2. NORVASC [Suspect]
     Indication: HYPERTENSION
     Route: 048
     Dates: start: 20060411, end: 20060501
  3. LIPITOR [Suspect]
     Indication: HYPERLIPIDAEMIA
     Route: 048
     Dates: start: 20060411, end: 20060413
  4. NOVORAPID [Concomitant]
     Indication: HYPERGLYCAEMIA
     Route: 058
     Dates: start: 20050301
  5. MEVALOTIN [Concomitant]
     Route: 048
     Dates: start: 20060221, end: 20060411

REACTIONS (4)
  - BLOOD CREATINE PHOSPHOKINASE INCREASED [None]
  - DIABETIC NEPHROPATHY [None]
  - MUSCLE SPASMS [None]
  - OEDEMA PERIPHERAL [None]
